FAERS Safety Report 5306467-9 (Version None)
Quarter: 2007Q2

REPORT INFORMATION
  Report Type: 
  Country: None (occurrence: None)
  Receive Date: 20070417
  Receipt Date: 20070330
  Transmission Date: 20071010
  Serious: Yes (Other)
  Sender: FDA-Public Use
  Company Number: AT-GUERBET-20070001

PATIENT
  Sex: Female

DRUGS (7)
  1. DOTAREM: / MEGLUMINE GADOTERATE [Suspect]
     Indication: ARTERIOGRAM RENAL
     Dosage: SE IMAGE
     Dates: start: 20031001
  2. DOTAREM: / MEGLUMINE GADOTERATE [Suspect]
     Indication: NUCLEAR MAGNETIC RESONANCE IMAGING
     Dosage: SE IMAGE
     Dates: start: 20031001
  3. DOTAREM: / MEGLUMINE GADOTERATE [Suspect]
     Indication: ARTERIOGRAM RENAL
     Dosage: SE IMAGE
     Dates: start: 20040101
  4. DOTAREM: / MEGLUMINE GADOTERATE [Suspect]
     Indication: NUCLEAR MAGNETIC RESONANCE IMAGING
     Dosage: SE IMAGE
     Dates: start: 20040101
  5. DOTAREM: / MEGLUMINE GADOTERATE [Suspect]
     Indication: ARTERIOGRAM RENAL
     Dosage: SE IMAGE
     Dates: start: 20040401
  6. DOTAREM: / MEGLUMINE GADOTERATE [Suspect]
     Indication: NUCLEAR MAGNETIC RESONANCE IMAGING
     Dosage: SE IMAGE
     Dates: start: 20040401
  7. CYCLOSPORINE [Concomitant]

REACTIONS (5)
  - ARTERIAL DISORDER [None]
  - NEPHROGENIC FIBROSING DERMOPATHY [None]
  - RENAL TRANSPLANT [None]
  - SKIN LESION [None]
  - TRANSPLANT REJECTION [None]
